FAERS Safety Report 7749555-X (Version None)
Quarter: 2011Q3

REPORT INFORMATION
  Report Type: 
  Country: None (occurrence: None)
  Receive Date: 20110907
  Receipt Date: 20110826
  Transmission Date: 20111222
  Serious: Yes (Other)
  Sender: FDA-Public Use
  Company Number: 2011SP040888

PATIENT
  Sex: Female

DRUGS (3)
  1. PEG-INTRON [Suspect]
     Indication: HEPATITIS C
     Dates: end: 20110723
  2. REBETOL [Suspect]
     Indication: HEPATITIS C
     Dates: end: 20110723
  3. VICTRELIS [Suspect]
     Indication: HEPATITIS C
     Dosage: 800 MG, TID
     Dates: start: 20110717, end: 20110723

REACTIONS (3)
  - DECREASED APPETITE [None]
  - ANGINA PECTORIS [None]
  - WOUND [None]
